FAERS Safety Report 6477800-X (Version None)
Quarter: 2009Q4

REPORT INFORMATION
  Report Type: 
  Country: None (occurrence: None)
  Receive Date: 20091207
  Receipt Date: 20091202
  Transmission Date: 20100525
  Serious: Yes (Hospitalization, Other)
  Sender: FDA-Public Use
  Company Number: US-B.I. PHARMACEUTICALS,INC./RIDGEFIELD-2009-BP-13447BP

PATIENT
  Sex: Male
  Weight: 81.7 kg

DRUGS (2)
  1. SPIRIVA [Suspect]
     Indication: CHRONIC OBSTRUCTIVE PULMONARY DISEASE
     Dosage: 36 MCG
     Route: 055
     Dates: start: 20050101, end: 20090101
  2. LISINOPRIL [Concomitant]
     Indication: HYPERTENSION
     Dates: start: 20040101

REACTIONS (11)
  - CARDIAC FAILURE CONGESTIVE [None]
  - CHEST INJURY [None]
  - CHRONIC OBSTRUCTIVE PULMONARY DISEASE [None]
  - CONCUSSION [None]
  - DRUG ERUPTION [None]
  - GAIT DISTURBANCE [None]
  - HAEMATEMESIS [None]
  - HEAD INJURY [None]
  - RASH GENERALISED [None]
  - ROAD TRAFFIC ACCIDENT [None]
  - WRIST FRACTURE [None]
